FAERS Safety Report 7773053-0 (Version None)
Quarter: 2011Q3

REPORT INFORMATION
  Report Type: 
  Country: None (occurrence: None)
  Receive Date: 20110922
  Receipt Date: 20110311
  Transmission Date: 20111222
  Serious: No
  Sender: FDA-Public Use
  Company Number: US-ASTRAZENECA-2011SE13826

PATIENT
  Age: 52 Year
  Sex: Female
  Weight: 90.7 kg

DRUGS (3)
  1. IMITREX [Concomitant]
     Indication: MIGRAINE
  2. ZOLOFT [Concomitant]
     Indication: BIPOLAR DISORDER
  3. SEROQUEL [Suspect]
     Indication: BIPOLAR DISORDER
     Route: 048

REACTIONS (5)
  - OROPHARYNGEAL PAIN [None]
  - FEELING ABNORMAL [None]
  - FATIGUE [None]
  - PYREXIA [None]
  - COUGH [None]
